FAERS Safety Report 24014911 (Version 2)
Quarter: 2024Q3

REPORT INFORMATION
  Report Type: Report from Study
  Country: US (occurrence: US)
  Receive Date: 20240626
  Receipt Date: 20240918
  Transmission Date: 20241017
  Serious: No
  Sender: AGIOS PHARMACEUTICALS
  Company Number: US-AGIOS-2406US03802

PATIENT
  Sex: Male

DRUGS (1)
  1. MITAPIVAT [Suspect]
     Active Substance: MITAPIVAT
     Indication: Pyruvate kinase deficiency anaemia
     Dosage: 50 MILLIGRAM, BID
     Route: 048
     Dates: start: 20240120

REACTIONS (3)
  - Tongue coated [Not Recovered/Not Resolved]
  - Candida infection [Not Recovered/Not Resolved]
  - Drug ineffective [Not Recovered/Not Resolved]
